FAERS Safety Report 13277113 (Version 1)
Quarter: 2017Q1

REPORT INFORMATION
  Report Type: Spontaneous
  Country: US (occurrence: US)
  Receive Date: 20170228
  Receipt Date: 20170228
  Transmission Date: 20170428
  Serious: No
  Sender: FDA-Public Use
  Company Number: None

PATIENT
  Sex: Female
  Weight: 63.5 kg

DRUGS (2)
  1. CRANBERRY PILLS [Concomitant]
  2. SMZ/TMP 800-160 MG TABLET MUTUAL PHARMACEUTICAL [Suspect]
     Active Substance: SULFAMETHOXAZOLE\TRIMETHOPRIM
     Indication: INFLAMMATION
     Dosage: QUANITY - 2 PILLS DAY
     Route: 048
     Dates: start: 20170130

REACTIONS (3)
  - Gastric disorder [None]
  - Epistaxis [None]
  - Peripheral swelling [None]
